FAERS Safety Report 23605211 (Version 1)
Quarter: 2024Q1

REPORT INFORMATION
  Report Type: Spontaneous
  Country: US (occurrence: US)
  Receive Date: 20240307
  Receipt Date: 20240307
  Transmission Date: 20240410
  Serious: No
  Sender: FDA-Public Use
  Company Number: US-BAUSCHBL-2024BNL002559

PATIENT
  Sex: Female

DRUGS (4)
  1. KETOTIFEN FUMARATE [Suspect]
     Active Substance: KETOTIFEN FUMARATE
     Indication: Dry eye
     Dosage: 1 DROP IN PATIENT RIGHT EYE. DROP IN HER LEFT EYE.
     Route: 047
     Dates: start: 202402
  2. KETOTIFEN FUMARATE [Suspect]
     Active Substance: KETOTIFEN FUMARATE
     Indication: Hypersensitivity
  3. DEVICE [Suspect]
     Active Substance: DEVICE
     Indication: Dry eye
     Route: 047
  4. DEVICE [Suspect]
     Active Substance: DEVICE
     Indication: Hypersensitivity

REACTIONS (2)
  - Eye irritation [Recovered/Resolved]
  - Ocular hyperaemia [Not Recovered/Not Resolved]

NARRATIVE: CASE EVENT DATE: 20240201
